FAERS Safety Report 7760632-X (Version None)
Quarter: 2011Q3

REPORT INFORMATION
  Report Type: 
  Country: None (occurrence: None)
  Receive Date: 20110919
  Receipt Date: 20110913
  Transmission Date: 20111222
  Serious: Yes (Other)
  Sender: FDA-Public Use
  Company Number: DE-PFIZER INC-2011215066

PATIENT
  Age: 42 Year
  Sex: Female

DRUGS (1)
  1. DIFLUCAN [Suspect]
     Dosage: 100 MG, UNK
     Dates: start: 20060101

REACTIONS (3)
  - HAEMORRHAGE [None]
  - DIALYSIS [None]
  - RENAL TRANSPLANT [None]
